FAERS Safety Report 12542188 (Version 2)
Quarter: 2016Q3

REPORT INFORMATION
  Report Type: Spontaneous
  Country: US (occurrence: US)
  Receive Date: 20160708
  Receipt Date: 20160715
  Transmission Date: 20161109
  Serious: Yes (Other)
  Sender: FDA-Public Use
  Company Number: US-SAOL THERAPEUTICS-2016SAO00094

PATIENT
  Age: 37 Year
  Sex: Male

DRUGS (4)
  1. BACLOFEN. [Suspect]
     Active Substance: BACLOFEN
     Indication: CRANIOCEREBRAL INJURY
  2. BACLOFEN. [Suspect]
     Active Substance: BACLOFEN
     Indication: MUSCLE SPASTICITY
     Dosage: UNK
  3. COMPOUNDED BACLOFEN [Suspect]
     Active Substance: BACLOFEN
     Indication: CRANIOCEREBRAL INJURY
  4. COMPOUNDED BACLOFEN [Suspect]
     Active Substance: BACLOFEN
     Indication: MUSCLE SPASTICITY
     Dosage: 649.8 ?G, \DAY
     Route: 037

REACTIONS (16)
  - Underdose [Unknown]
  - Performance status decreased [Unknown]
  - Device failure [Not Recovered/Not Resolved]
  - Headache [Unknown]
  - Insomnia [Unknown]
  - Seizure [Unknown]
  - Dysarthria [Unknown]
  - Dysuria [Unknown]
  - Joint swelling [Unknown]
  - Tremor [Unknown]
  - Muscle tightness [Unknown]
  - Incoherent [Unknown]
  - Hallucination [Unknown]
  - Rash [Unknown]
  - Dysstasia [Unknown]
  - Drug dose omission [Unknown]

NARRATIVE: CASE EVENT DATE: 20160302
